FAERS Safety Report 7609579-X (Version None)
Quarter: 2011Q3

REPORT INFORMATION
  Report Type: 
  Country: None (occurrence: None)
  Receive Date: 20110714
  Receipt Date: 20110705
  Transmission Date: 20111222
  Serious: Yes (Hospitalization)
  Sender: FDA-Public Use
  Company Number: US-ABBOTT-10P-163-0632112-00

PATIENT
  Sex: Female
  Weight: 163.29 kg

DRUGS (12)
  1. LYRICA [Concomitant]
     Indication: NEUROPATHY PERIPHERAL
     Dates: start: 20070101, end: 20100427
  2. HUMIRA [Suspect]
     Route: 058
     Dates: start: 20100407
  3. HYDROXYZINE HCL [Concomitant]
     Indication: PRURITUS
     Dates: start: 20090301, end: 20090701
  4. MONOPRIL [Concomitant]
     Indication: HYPERTENSION
     Dates: start: 20040101
  5. TRIAMCINOLONE [Concomitant]
     Indication: PSORIASIS
     Dates: start: 20090522
  6. DIFLUCAN [Concomitant]
     Indication: VULVOVAGINAL CANDIDIASIS
     Dates: start: 20070101
  7. LASIX [Concomitant]
     Indication: OEDEMA PERIPHERAL
     Dosage: ONCE A DAY AS NEEDED
     Dates: start: 20090801
  8. PREVACID [Concomitant]
     Indication: HIATUS HERNIA
     Dates: start: 19890101
  9. ALLEGRA [Concomitant]
     Indication: HYPERSENSITIVITY
     Dates: start: 20040101
  10. CYMBALTA [Concomitant]
     Indication: NEUROPATHY PERIPHERAL
     Dates: start: 20090501
  11. HUMIRA [Suspect]
     Indication: PSORIASIS
     Route: 058
     Dates: start: 20090609, end: 20100217
  12. DARVOCET-N 50 [Concomitant]
     Indication: ARTHRITIS
     Dates: start: 20040101

REACTIONS (1)
  - BRONCHITIS [None]
